FAERS Safety Report 10454105 (Version 2)
Quarter: 2014Q3

REPORT INFORMATION
  Report Type: Spontaneous
  Country: US (occurrence: US)
  Receive Date: 20140915
  Receipt Date: 20140915
  Transmission Date: 20150326
  Serious: No
  Sender: FDA-Public Use
  Company Number: US-BRISTOL-MYERS SQUIBB COMPANY-21042684

PATIENT
  Age: 77 Year
  Sex: Male

DRUGS (13)
  1. NITROGLYCERIN. [Concomitant]
     Active Substance: NITROGLYCERIN
  2. LIPITOR [Concomitant]
     Active Substance: ATORVASTATIN CALCIUM
  3. CARTIA XT [Concomitant]
     Active Substance: DILTIAZEM HYDROCHLORIDE
  4. AVODART [Concomitant]
     Active Substance: DUTASTERIDE
  5. ELIQUIS [Suspect]
     Active Substance: APIXABAN
     Indication: ATRIAL FIBRILLATION
     Dates: start: 201401, end: 20140616
  6. OXYCONTIN [Concomitant]
     Active Substance: OXYCODONE HYDROCHLORIDE
     Dosage: JUST RECENTLY DISCONT.
  7. TESTIM [Concomitant]
     Active Substance: TESTOSTERONE
     Dosage: HALF A PACK TO APPLY TOPICALLY EACH MORNING.
  8. FLOMAX [Concomitant]
     Active Substance: TAMSULOSIN HYDROCHLORIDE
  9. PERCOCET [Concomitant]
     Active Substance: ACETAMINOPHEN\OXYCODONE HYDROCHLORIDE
     Dosage: PERCOCET 5/325 (HAS BEEN ADJUSTING THE DOSAGE. PRESENTLY HE^S UP TO 10-325)
  10. METOPROLOL [Concomitant]
     Active Substance: METOPROLOL
  11. PROTONIX [Concomitant]
     Active Substance: PANTOPRAZOLE SODIUM
     Dosage: JUST UPPED IT TO 2 TABLETS
  12. LAXATIVES [Concomitant]
     Active Substance: UNSPECIFIED INGREDIENT
  13. ESCITALOPRAM [Concomitant]
     Active Substance: ESCITALOPRAM OXALATE

REACTIONS (3)
  - Weight decreased [Unknown]
  - Constipation [Unknown]
  - Abdominal discomfort [Unknown]
